FAERS Safety Report 11365563 (Version 1)
Quarter: 2015Q3

REPORT INFORMATION
  Report Type: Report from Study
  Country: US (occurrence: US)
  Receive Date: 20150811
  Receipt Date: 20150811
  Transmission Date: 20151125
  Serious: Yes (Hospitalization, Other)
  Sender: FDA-Public Use
  Company Number: US-ABBVIE-15K-163-1440454-00

PATIENT
  Age: 71 Year
  Sex: Male
  Weight: 98.97 kg

DRUGS (11)
  1. HUMIRA [Suspect]
     Active Substance: ADALIMUMAB
     Indication: CROHN^S DISEASE
     Route: 065
  2. HUMIRA [Suspect]
     Active Substance: ADALIMUMAB
     Route: 065
  3. HUMIRA [Suspect]
     Active Substance: ADALIMUMAB
     Route: 065
  4. VITAMIN B12 [Concomitant]
     Active Substance: CYANOCOBALAMIN
     Indication: HYPOVITAMINOSIS
  5. CENTRUM SILVER [Concomitant]
     Active Substance: VITAMINS
     Indication: PRODUCT USED FOR UNKNOWN INDICATION
  6. HUMIRA [Suspect]
     Active Substance: ADALIMUMAB
     Route: 065
     Dates: end: 201409
  7. LOSARTAN AND HYDROCHLOROTHIAZIDE [Concomitant]
     Active Substance: HYDROCHLOROTHIAZIDE\LOSARTAN POTASSIUM
     Indication: HYPERTENSION
  8. CALCIUM CARBONATE AND VITAMIN D [Concomitant]
     Indication: PRODUCT USED FOR UNKNOWN INDICATION
  9. GEMFIBROZIL. [Concomitant]
     Active Substance: GEMFIBROZIL
     Indication: BLOOD TRIGLYCERIDES INCREASED
  10. IMURAN [Concomitant]
     Active Substance: AZATHIOPRINE
     Indication: CROHN^S DISEASE
  11. OMEPRAZOLE. [Concomitant]
     Active Substance: OMEPRAZOLE
     Indication: GASTROOESOPHAGEAL REFLUX DISEASE

REACTIONS (4)
  - Device related infection [Recovered/Resolved]
  - Chronic obstructive pulmonary disease [Not Recovered/Not Resolved]
  - Aortic aneurysm [Recovered/Resolved]
  - Bronchitis [Recovering/Resolving]

NARRATIVE: CASE EVENT DATE: 2014
